FAERS Safety Report 7814602-3 (Version None)
Quarter: 2011Q4

REPORT INFORMATION
  Report Type: 
  Country: None (occurrence: None)
  Receive Date: 20111014
  Receipt Date: 20110930
  Transmission Date: 20120403
  Serious: Yes (Other)
  Sender: FDA-Public Use
  Company Number: US-BAYER-2011-082339

PATIENT
  Age: 33 Year
  Sex: Female
  Weight: 65.76 kg

DRUGS (1)
  1. YASMIN [Suspect]
     Indication: CONTRACEPTION
     Dosage: UNK
     Dates: start: 20071221, end: 20091223

REACTIONS (6)
  - INJURY [None]
  - MENTAL DISORDER [None]
  - MALAISE [None]
  - PAIN [None]
  - GALLBLADDER INJURY [None]
  - CHOLECYSTITIS [None]
